FAERS Safety Report 7024359-4 (Version None)
Quarter: 2010Q4

REPORT INFORMATION
  Report Type: 
  Country: None (occurrence: None)
  Receive Date: 20101001
  Receipt Date: 20100930
  Transmission Date: 20110411
  Serious: Yes (Hospitalization)
  Sender: FDA-Public Use
  Company Number: BR-MEDIMMUNE-MEDI-0011558

PATIENT
  Sex: Female
  Weight: 8.7 kg

DRUGS (8)
  1. SYNAGIS [Suspect]
     Indication: CARDIAC DISORDER
     Route: 030
     Dates: start: 20090701, end: 20100701
  2. IBUPROFEN [Concomitant]
     Indication: INFLAMMATION
  3. DIMETICONE [Concomitant]
     Indication: FLATULENCE
  4. PARACETAMOL [Concomitant]
     Indication: PAIN
  5. PANTOZOLE [Concomitant]
     Indication: PROPHYLAXIS
  6. PANTOZOLE [Concomitant]
     Indication: GASTRIC DISORDER
  7. MONTELUKAST SODIUM [Concomitant]
  8. CLOPIDOGREL BISULFATE [Concomitant]
     Indication: DIURETIC THERAPY

REACTIONS (3)
  - CHYLOTHORAX [None]
  - HYPERSENSITIVITY [None]
  - SOFT TISSUE INFECTION [None]
